FAERS Safety Report 4874990-7 (Version None)
Quarter: 2006Q1

REPORT INFORMATION
  Report Type: 
  Country: None (occurrence: None)
  Receive Date: 20060105
  Receipt Date: 20051220
  Transmission Date: 20060701
  Serious: Yes (Death)
  Sender: FDA-Public Use
  Company Number: 8013990

PATIENT
  Age: 79 Year
  Sex: Male
  Weight: 75 kg

DRUGS (2)
  1. LEVETIRACETAM [Suspect]
     Indication: EPILEPSY
     Dosage: 250 MG 2.D; PO
     Route: 048
     Dates: start: 20050201
  2. TEGRETOL [Concomitant]

REACTIONS (7)
  - ANAEMIA [None]
  - ANTICONVULSANT DRUG LEVEL INCREASED [None]
  - CONSTIPATION [None]
  - DIARRHOEA [None]
  - DYSPEPSIA [None]
  - SOMNOLENCE [None]
  - SUDDEN DEATH [None]
